FAERS Safety Report 13265438 (Version 2)
Quarter: 2017Q1

REPORT INFORMATION
  Report Type: Spontaneous
  Country: US (occurrence: US)
  Receive Date: 20170223
  Receipt Date: 20170223
  Transmission Date: 20170428
  Serious: Yes (Hospitalization)
  Sender: FDA-Public Use
  Company Number: US-BRACCO-014060

PATIENT
  Age: 70 Year
  Sex: Female

DRUGS (1)
  1. ISOVUE-M [Suspect]
     Active Substance: IOPAMIDOL
     Indication: SPINAL MYELOGRAM
     Route: 037
     Dates: start: 20161014, end: 20161014

REACTIONS (1)
  - Anaphylactoid reaction [Recovered/Resolved]

NARRATIVE: CASE EVENT DATE: 20161014
